FAERS Safety Report 8381792-6 (Version None)
Quarter: 2012Q2

REPORT INFORMATION
  Report Type: 
  Country: None (occurrence: None)
  Receive Date: 20120522
  Receipt Date: 20120522
  Transmission Date: 20120825
  Serious: Yes (Other)
  Sender: FDA-Public Use
  Company Number: None

PATIENT
  Age: 66 Year
  Sex: Female
  Weight: 104.5 kg

DRUGS (1)
  1. ACETAMINOPHEN [Suspect]
     Dosage: 500 MG 3 TIMES A DAY ORAL
     Route: 048
     Dates: start: 20120107, end: 20120130

REACTIONS (10)
  - WEIGHT INCREASED [None]
  - HEADACHE [None]
  - EYELID OEDEMA [None]
  - ERYTHEMA OF EYELID [None]
  - FATIGUE [None]
  - TINNITUS [None]
  - NERVOUSNESS [None]
  - GASTROINTESTINAL DISORDER [None]
  - NAUSEA [None]
  - FLATULENCE [None]
